FAERS Safety Report 18340860 (Version 1)
Quarter: 2020Q4

REPORT INFORMATION
  Report Type: Spontaneous
  Country: FR (occurrence: FR)
  Receive Date: 20201003
  Receipt Date: 20201003
  Transmission Date: 20210113
  Serious: Yes (Life-Threatening, Other)
  Sender: FDA-Public Use
  Company Number: FR-AUROBINDO-AUR-APL-2020-050042

PATIENT
  Age: 22 Year
  Sex: Female

DRUGS (4)
  1. RISPERIDONE. [Suspect]
     Active Substance: RISPERIDONE
     Indication: SUICIDE ATTEMPT
     Dosage: 6 DOSAGE FORM (6 COMPRIM?S)
     Route: 048
     Dates: start: 20130820
  2. DEPAKOTE [Suspect]
     Active Substance: DIVALPROEX SODIUM
     Indication: SUICIDE ATTEMPT
     Dosage: 90 DOSAGE FORM (90 COMPRIM?S)
     Route: 048
     Dates: start: 20130820
  3. ZOLPIDEM [Suspect]
     Active Substance: ZOLPIDEM TARTRATE
     Indication: SUICIDE ATTEMPT
     Dosage: 16 DOSAGE FORM (16 COMPRIM?S)
     Route: 048
     Dates: start: 20130820
  4. TRANXENE [Suspect]
     Active Substance: CLORAZEPATE DIPOTASSIUM
     Indication: SUICIDE ATTEMPT
     Dosage: 30 DOSAGE FORM (30 COMPRIM?S)
     Route: 048
     Dates: start: 20130820

REACTIONS (3)
  - Hyperammonaemia [Recovered/Resolved]
  - Hyperlactacidaemia [Recovered/Resolved]
  - Coma [Recovered/Resolved]

NARRATIVE: CASE EVENT DATE: 20130820
